FAERS Safety Report 7282046-1 (Version None)
Quarter: 2011Q1

REPORT INFORMATION
  Report Type: 
  Country: None (occurrence: None)
  Receive Date: 20110208
  Receipt Date: 20110121
  Transmission Date: 20110831
  Serious: Yes (Other)
  Sender: FDA-Public Use
  Company Number: PHHY2011PT06623

PATIENT
  Age: 49 Year
  Sex: Female

DRUGS (2)
  1. WARFARIN SODIUM [Suspect]
     Dosage: 10 MG
     Route: 048
  2. WARFARIN SODIUM [Suspect]
     Dosage: 5 MG, QD
     Route: 048

REACTIONS (3)
  - INTERNATIONAL NORMALISED RATIO INCREASED [None]
  - DRUG HYPERSENSITIVITY [None]
  - STRESS URINARY INCONTINENCE [None]
